FAERS Safety Report 8152235-2 (Version None)
Quarter: 2012Q1

REPORT INFORMATION
  Report Type: 
  Country: None (occurrence: None)
  Receive Date: 20120215
  Receipt Date: 20120215
  Transmission Date: 20120608
  Serious: Yes (Life-Threatening, Hospitalization)
  Sender: FDA-Public Use
  Company Number: None

PATIENT
  Age: 80 Year
  Sex: Male
  Weight: 114.7 kg

DRUGS (2)
  1. ASPIRIN [Suspect]
     Indication: DIABETES MELLITUS
     Dosage: MG EVERY DAY PO
     Route: 048
     Dates: start: 20070101
  2. WARFARIN SODIUM [Suspect]
     Indication: ATRIAL FIBRILLATION
     Dosage: MG PO
     Route: 048
     Dates: start: 20040101

REACTIONS (3)
  - RECTAL HAEMORRHAGE [None]
  - INTERNATIONAL NORMALISED RATIO INCREASED [None]
  - GASTRIC HAEMORRHAGE [None]
